FAERS Safety Report 10463110 (Version 4)
Quarter: 2015Q1

REPORT INFORMATION
  Report Type: Report from Study
  Country: CH (occurrence: CH)
  Receive Date: 20140919
  Receipt Date: 20150130
  Transmission Date: 20150720
  Serious: Yes (Death, Hospitalization)
  Sender: FDA-Public Use
  Company Number: CH-ROCHE-1463783

PATIENT
  Age: 47 Year
  Sex: Female
  Weight: 71 kg

DRUGS (5)
  1. CARBOPLATINUM [Concomitant]
     Active Substance: CARBOPLATIN
     Route: 065
     Dates: start: 200909
  2. GEMCITABINE [Concomitant]
     Active Substance: GEMCITABINE\GEMCITABINE HYDROCHLORIDE
     Indication: OVARIAN CANCER
     Route: 065
     Dates: start: 201203, end: 201209
  3. AVASTIN [Suspect]
     Active Substance: BEVACIZUMAB
     Route: 042
     Dates: start: 201209, end: 20130805
  4. CARBOPLATINUM [Concomitant]
     Active Substance: CARBOPLATIN
     Indication: OVARIAN CANCER
     Route: 065
     Dates: start: 201203, end: 201209
  5. AVASTIN [Suspect]
     Active Substance: BEVACIZUMAB
     Indication: OVARIAN CANCER
     Route: 042
     Dates: start: 201203, end: 201209

REACTIONS (8)
  - Disease progression [Fatal]
  - Abdominal pain upper [Recovered/Resolved]
  - Female genital tract fistula [Unknown]
  - Abdominal pain [Recovered/Resolved]
  - Decreased appetite [Recovered/Resolved]
  - Subileus [Not Recovered/Not Resolved]
  - Mental disorder [Recovered/Resolved]
  - Pyrexia [Recovered/Resolved]

NARRATIVE: CASE EVENT DATE: 201304
